FAERS Safety Report 6816688-1 (Version None)
Quarter: 2010Q3

REPORT INFORMATION
  Report Type: 
  Country: None (occurrence: None)
  Receive Date: 20100706
  Receipt Date: 20100629
  Transmission Date: 20110219
  Serious: Yes (Hospitalization, Disabling, Other)
  Sender: FDA-Public Use
  Company Number: JP-B.I. PHARMACEUTICALS,INC./RIDGEFIELD-2010-BP-05316NB

PATIENT
  Sex: Male
  Weight: 67 kg

DRUGS (6)
  1. MICARDIS [Suspect]
     Indication: HYPERTENSION
     Dosage: 20 MG
     Route: 048
  2. NORVASC [Suspect]
     Indication: HYPERTENSION
     Dosage: 5 MG
     Route: 048
     Dates: start: 19980101
  3. FLUITRAN [Suspect]
     Indication: HYPERTENSION
     Dosage: 1 MG
     Route: 048
     Dates: start: 19990101
  4. URINORM [Suspect]
     Indication: GOUT
     Dosage: 25 MG
     Route: 048
     Dates: start: 19990101
  5. URALYT [Suspect]
     Route: 048
     Dates: start: 19990101
  6. MEVALOTIN [Suspect]
     Indication: HYPERLIPIDAEMIA
     Route: 048
     Dates: start: 19990101

REACTIONS (1)
  - HEPATITIS [None]
